FAERS Safety Report 7328186-X (Version None)
Quarter: 2011Q1

REPORT INFORMATION
  Report Type: 
  Country: None (occurrence: None)
  Receive Date: 20110303
  Receipt Date: 20110303
  Transmission Date: 20110831
  Serious: Yes (Hospitalization)
  Sender: FDA-Public Use
  Company Number: PHHO2007CZ14041

PATIENT
  Sex: Female
  Weight: 58.5 kg

DRUGS (6)
  1. FUROSEMID [Concomitant]
  2. ENAP [Concomitant]
  3. DHC CONTINUS [Concomitant]
  4. PLACEBO [Suspect]
     Indication: CARCINOID TUMOUR
     Dosage: PLACEBO
     Route: 048
     Dates: start: 20070504
  5. SANDOSTATIN LAR [Suspect]
     Indication: CARCINOID TUMOUR
     Dosage: CODE NOT BROKEN
     Route: 048
     Dates: start: 20070504
  6. VASOCARDIN [Concomitant]

REACTIONS (3)
  - ASCITES [None]
  - INCISIONAL DRAINAGE [None]
  - DISEASE PROGRESSION [None]
